FAERS Safety Report 12356119 (Version 4)
Quarter: 2016Q2

REPORT INFORMATION
  Report Type: Spontaneous
  Country: US (occurrence: US)
  Receive Date: 20160511
  Receipt Date: 20160610
  Transmission Date: 20160815
  Serious: Yes (Other)
  Sender: FDA-Public Use
  Company Number: ALCN2016US003239

PATIENT
  Age: 83 Year
  Sex: Female

DRUGS (3)
  1. BRIMONIDINE [Suspect]
     Active Substance: BRIMONIDINE TARTRATE
     Indication: GLAUCOMA
     Route: 047
  2. NEVANAC [Suspect]
     Active Substance: NEPAFENAC
     Indication: KERATITIS
     Route: 047
  3. DORZOLAMIDE,TIMOLOL [Suspect]
     Active Substance: DORZOLAMIDE\TIMOLOL
     Indication: GLAUCOMA
     Route: 047

REACTIONS (5)
  - Glaucoma [Recovered/Resolved]
  - Intraocular pressure increased [Recovered/Resolved]
  - Anterior chamber inflammation [Recovered/Resolved]
  - Visual acuity reduced [Recovered/Resolved]
  - Corneal oedema [Recovered/Resolved]
